FAERS Safety Report 8640915 (Version 2)
Quarter: 2013Q3

REPORT INFORMATION
  Report Type: Spontaneous
  Country: GB (occurrence: GB)
  Receive Date: 20120628
  Receipt Date: 20130923
  Transmission Date: 20140515
  Serious: Yes (Hospitalization)
  Sender: FDA-Public Use
  Company Number: GB-PFIZER INC-2012149366

PATIENT
  Age: 88 Year
  Sex: Male
  Weight: 57 kg

DRUGS (5)
  1. GABAPENTIN [Suspect]
     Indication: SCIATICA
     Dosage: 200 MG, 3X/DAY
     Route: 048
     Dates: end: 20120523
  2. ALENDRONIC ACID [Concomitant]
     Route: 048
  3. CALCICHEW-D3 [Concomitant]
     Route: 048
  4. CLOPIDOGREL [Concomitant]
     Route: 048
  5. SIMVASTATIN [Concomitant]
     Route: 048
     Dates: start: 20110523

REACTIONS (2)
  - Jaundice cholestatic [Recovered/Resolved]
  - Liver function test abnormal [Recovering/Resolving]
